FAERS Safety Report 6741814-2 (Version None)
Quarter: 2010Q2

REPORT INFORMATION
  Report Type: 
  Country: None (occurrence: None)
  Receive Date: 20100526
  Receipt Date: 20100428
  Transmission Date: 20101027
  Serious: Yes (Hospitalization, Other)
  Sender: FDA-Public Use
  Company Number: US-ROCHE-704654

PATIENT
  Sex: Male
  Weight: 61.2 kg

DRUGS (12)
  1. CAPECITABINE [Suspect]
     Indication: COLORECTAL CANCER
     Dosage: THREE 500 MG TABLES + ONE 150 MG TABLET, CYCLIC: ON FOR 2 WEEKS AND OFF FOR 1 WEEK
     Route: 048
     Dates: start: 20100317, end: 20100418
  2. CAPECITABINE [Suspect]
     Dosage: LOWER DOSAGE
     Route: 048
     Dates: start: 20100501
  3. ATIVAN [Suspect]
     Indication: DRUG USE FOR UNKNOWN INDICATION
     Dosage: AS NEEDED
     Route: 065
  4. PANCRELIPASE [Concomitant]
     Route: 048
  5. ERYTHROMYCIN [Concomitant]
     Route: 048
  6. ASPIRIN [Concomitant]
     Route: 048
  7. MEGACE [Concomitant]
     Dosage: STRENGTH: 40 MG/ML
     Route: 048
  8. PROCHLORPERAZINE [Concomitant]
     Indication: NAUSEA
     Dosage: AS NEEDED FOR NAUSEA/VOMITING,NOT TO EXCEED 4 DOSES IN 24 HOURS,TO BE TAKEN 1:30 MIN PRIOR TO XELODA
     Route: 048
  9. OMEPRAZOLE [Concomitant]
     Route: 048
  10. FENTANYL [Concomitant]
     Dosage: STRENGTH: 25 MCG/HR FILM, EXTENDED RELEASE
     Route: 061
  11. PAXIL CR [Concomitant]
     Dosage: DOSE: 25 MG AT NIGHT AT BEDTIME
     Route: 048
  12. SEROQUEL [Concomitant]
     Dosage: DOSE: 50 MG AT BED TIME
     Route: 048

REACTIONS (14)
  - ASTHENIA [None]
  - BLOOD GLUCOSE INCREASED [None]
  - CHILLS [None]
  - CONFUSIONAL STATE [None]
  - GASTROOESOPHAGEAL REFLUX DISEASE [None]
  - INTESTINAL OBSTRUCTION [None]
  - NAUSEA [None]
  - PANCREATIC ATROPHY [None]
  - RENAL FAILURE ACUTE [None]
  - SEDATION [None]
  - SKIN DISCOLOURATION [None]
  - TACHYCARDIA [None]
  - TREMOR [None]
  - WEIGHT DECREASED [None]
